FAERS Safety Report 18778603 (Version 1)
Quarter: 2021Q1

REPORT INFORMATION
  Report Type: Report from Study
  Country: CZ (occurrence: CZ)
  Receive Date: 20210124
  Receipt Date: 20210124
  Transmission Date: 20210419
  Serious: Yes (Other)
  Sender: FDA-Public Use
  Company Number: CZ-TEVA-2020-CZ-1860258

PATIENT
  Age: 68 Year
  Sex: Female

DRUGS (15)
  1. BENDAMUSTINE HYDROCHLORIDE. [Suspect]
     Active Substance: BENDAMUSTINE HYDROCHLORIDE
     Dosage: (CYCLE 5)
     Route: 042
     Dates: start: 20200324, end: 20200518
  2. POLATUZUMAB VEDOTIN. [Suspect]
     Active Substance: POLATUZUMAB VEDOTIN
     Dosage: (CYCLE 3)
     Route: 042
     Dates: start: 20200212
  3. RITUXIMAB. [Suspect]
     Active Substance: RITUXIMAB
     Dosage: (CYCLE 2)
     Route: 042
     Dates: start: 20200121
  4. BENDAMUSTINE HYDROCHLORIDE. [Suspect]
     Active Substance: BENDAMUSTINE HYDROCHLORIDE
     Indication: DIFFUSE LARGE B-CELL LYMPHOMA
     Dosage: (CYCLE 1)
     Route: 042
     Dates: start: 20191223
  5. BENDAMUSTINE HYDROCHLORIDE. [Suspect]
     Active Substance: BENDAMUSTINE HYDROCHLORIDE
     Dosage: (CYCLE 3)
     Route: 042
     Dates: start: 20200212
  6. BENDAMUSTINE HYDROCHLORIDE. [Suspect]
     Active Substance: BENDAMUSTINE HYDROCHLORIDE
     Dosage: (CYCLE 4)
     Route: 042
     Dates: start: 20200304
  7. RITUXIMAB. [Suspect]
     Active Substance: RITUXIMAB
     Dosage: (CYCLE 5)
     Route: 042
     Dates: start: 20200324, end: 20200518
  8. POLATUZUMAB VEDOTIN. [Suspect]
     Active Substance: POLATUZUMAB VEDOTIN
     Dosage: (CYCLE 4)
     Route: 042
     Dates: start: 20200304
  9. POLATUZUMAB VEDOTIN. [Suspect]
     Active Substance: POLATUZUMAB VEDOTIN
     Dosage: (CYCLE 5)
     Route: 042
     Dates: start: 20200324, end: 20200518
  10. RITUXIMAB. [Suspect]
     Active Substance: RITUXIMAB
     Indication: DIFFUSE LARGE B-CELL LYMPHOMA
     Dosage: (CYCLE1)
     Route: 042
     Dates: start: 20191223
  11. RITUXIMAB. [Suspect]
     Active Substance: RITUXIMAB
     Dosage: (CYCLE 4)
     Route: 042
     Dates: start: 20200304
  12. BENDAMUSTINE HYDROCHLORIDE. [Suspect]
     Active Substance: BENDAMUSTINE HYDROCHLORIDE
     Dosage: (CYCLE 2)
     Route: 042
     Dates: start: 20200121
  13. POLATUZUMAB VEDOTIN. [Suspect]
     Active Substance: POLATUZUMAB VEDOTIN
     Dosage: (CYCLE 2)
     Route: 042
     Dates: start: 20200121
  14. RITUXIMAB. [Suspect]
     Active Substance: RITUXIMAB
     Dosage: (CYCLE 3)
     Route: 042
     Dates: start: 20200212
  15. POLATUZUMAB VEDOTIN. [Suspect]
     Active Substance: POLATUZUMAB VEDOTIN
     Indication: DIFFUSE LARGE B-CELL LYMPHOMA
     Dosage: (CYCLE 1)
     Route: 042
     Dates: start: 20191223

REACTIONS (3)
  - Myelosuppression [Unknown]
  - Product use in unapproved indication [Unknown]
  - Cytopenia [Unknown]

NARRATIVE: CASE EVENT DATE: 20191223
